FAERS Safety Report 5486387-X (Version None)
Quarter: 2007Q4

REPORT INFORMATION
  Report Type: 
  Country: None (occurrence: None)
  Receive Date: 20071016
  Receipt Date: 20071005
  Transmission Date: 20080405
  Serious: Yes (Hospitalization)
  Sender: FDA-Public Use
  Company Number: FR-ELI_LILLY_AND_COMPANY-FR200709000461

PATIENT
  Age: 79 Year
  Sex: Female
  Weight: 48 kg

DRUGS (11)
  1. FORTEO [Suspect]
     Indication: OSTEOPOROSIS
     Dosage: 20 UG, DAILY (1/D)
     Route: 058
     Dates: start: 20070204
  2. FORTEO [Suspect]
     Dosage: 20 UG, DAILY (1/D)
     Route: 058
     Dates: start: 20070810
  3. RISORDAN [Concomitant]
  4. AMIODARONE [Concomitant]
  5. DIGOXIN [Concomitant]
  6. MODURETIC 5-50 [Concomitant]
  7. FOSINOPRIL SODIUM AND HYDROCHLOROTHIAZIDE [Concomitant]
  8. AMLOR [Concomitant]
  9. CORTANCYL [Concomitant]
     Dosage: 5 MG, UNK
  10. IDEOS [Concomitant]
  11. INNOHEP [Concomitant]
     Dosage: 1 D/F, DAILY (1/D)
     Route: 058

REACTIONS (2)
  - FALL [None]
  - FEMUR FRACTURE [None]
